FAERS Safety Report 23930502 (Version 2)
Quarter: 2024Q4

REPORT INFORMATION
  Report Type: Report from Study
  Country: CA (occurrence: CA)
  Receive Date: 20240602
  Receipt Date: 20241212
  Transmission Date: 20250114
  Serious: Yes (Hospitalization)
  Sender: ABBVIE
  Company Number: CA-ABBVIE-5782201

PATIENT
  Age: 47 Year
  Sex: Male

DRUGS (2)
  1. SKYRIZI [Suspect]
     Active Substance: RISANKIZUMAB-RZAA
     Indication: Crohn^s disease
     Route: 058
     Dates: start: 20230630
  2. PREDNISONE [Concomitant]
     Active Substance: PREDNISONE
     Indication: Product used for unknown indication

REACTIONS (15)
  - Intestinal obstruction [Recovering/Resolving]
  - Crohn^s disease [Unknown]
  - Drug ineffective [Unknown]
  - Plethoric face [Unknown]
  - Inguinal hernia [Unknown]
  - Abdominal lymphadenopathy [Unknown]
  - Pelvic fluid collection [Unknown]
  - Renal cyst [Unknown]
  - Faecal calprotectin increased [Unknown]
  - Gastrointestinal wall thickening [Unknown]
  - Intestinal dilatation [Unknown]
  - Intestinal anastomosis [Unknown]
  - Gastrointestinal oedema [Unknown]
  - Gastrointestinal inflammation [Unknown]
  - Intestinal stenosis [Unknown]

NARRATIVE: CASE EVENT DATE: 20240101
